FAERS Safety Report 4680392-9 (Version None)
Quarter: 2005Q2

REPORT INFORMATION
  Report Type: 
  Country: None (occurrence: None)
  Receive Date: 20050601
  Receipt Date: 20050516
  Transmission Date: 20051028
  Serious: Yes (Hospitalization)
  Sender: FDA-Public Use
  Company Number: 8010651

PATIENT
  Age: 13 Year
  Sex: Male

DRUGS (1)
  1. KEPPRA [Suspect]
     Dosage: 375 MG /D PO
     Route: 048

REACTIONS (4)
  - AGGRESSION [None]
  - FEELING ABNORMAL [None]
  - PHYSICAL ASSAULT [None]
  - SELF INJURIOUS BEHAVIOUR [None]
